FAERS Safety Report 4456767-X (Version None)
Quarter: 2004Q3

REPORT INFORMATION
  Report Type: 
  Country: None (occurrence: None)
  Receive Date: 20040921
  Receipt Date: 20040913
  Transmission Date: 20050211
  Serious: Yes (Death, Hospitalization)
  Sender: FDA-Public Use
  Company Number: US-JNJFOC-20040903599

PATIENT
  Age: 28 Year
  Sex: Male

DRUGS (2)
  1. ACETAMINOPHEN [Suspect]
     Indication: SUICIDE ATTEMPT
     Dosage: ORAL
     Route: 048
  2. PAIN MEDICATIONS (ANALGESICS) [Concomitant]

REACTIONS (12)
  - AGGRESSION [None]
  - AGITATION [None]
  - ALANINE AMINOTRANSFERASE INCREASED [None]
  - AMMONIA INCREASED [None]
  - ASPARTATE AMINOTRANSFERASE INCREASED [None]
  - BLOOD CREATININE INCREASED [None]
  - BRAIN DEATH [None]
  - CONFUSIONAL STATE [None]
  - HYPOTENSION [None]
  - INTERNATIONAL NORMALISED RATIO INCREASED [None]
  - MULTI-ORGAN FAILURE [None]
  - TACHYCARDIA [None]
